FAERS Safety Report 4676101-X (Version None)
Quarter: 2005Q2

REPORT INFORMATION
  Report Type: 
  Country: None (occurrence: None)
  Receive Date: 20050527
  Receipt Date: 20050325
  Transmission Date: 20051028
  Serious: No
  Sender: FDA-Public Use
  Company Number: US-GLAXOSMITHKLINE-A0551340A

PATIENT
  Age: 8 Month
  Sex: Male

DRUGS (2)
  1. WELLBUTRIN XL [Suspect]
     Indication: POSTPARTUM DEPRESSION
     Dosage: 150MG PER DAY
  2. PRENATAL VITAMINS [Concomitant]

REACTIONS (4)
  - ANOREXIA [None]
  - DRUG EXPOSURE VIA BREAST MILK [None]
  - IRRITABILITY [None]
  - SOMNOLENCE [None]
